FAERS Safety Report 23876134 (Version 1)
Quarter: 2024Q2

REPORT INFORMATION
  Report Type: Spontaneous
  Country: BR (occurrence: BR)
  Receive Date: 20240520
  Receipt Date: 20240520
  Transmission Date: 20240716
  Serious: Yes (Other)
  Sender: FDA-Public Use
  Company Number: BR-SA-SAC20240517001217

PATIENT
  Age: 2 Year
  Sex: Female

DRUGS (13)
  1. SABRIL [Suspect]
     Active Substance: VIGABATRIN
     Indication: Infantile spasms
     Dosage: DILUTE 2 TABLETS IN 10 ML OF WATER AND GIVE 10 ML IN THE MORNING; DILUTE THREE TABLETS IN 10 ML OF W
     Route: 065
  2. SABRIL [Suspect]
     Active Substance: VIGABATRIN
     Dosage: 1.5 DF, Q12H (TAKE 1 AND A HALF TABLETS EACH 12/12H)
     Route: 065
  3. SABRIL [Suspect]
     Active Substance: VIGABATRIN
     Dosage: 2 DF, BID
     Route: 065
  4. CLOBAZAM [Suspect]
     Active Substance: CLOBAZAM
     Indication: Partial seizures
     Dosage: 1 DF, HS
     Route: 065
  5. PHENOBARBITAL [Concomitant]
     Active Substance: PHENOBARBITAL
     Indication: Infantile spasms
     Dosage: 16 DROP, BID
     Route: 065
  6. PHENYTOIN [Concomitant]
     Active Substance: PHENYTOIN
     Indication: Product used for unknown indication
     Dosage: UNK
     Route: 065
  7. MIDAZOLAM [Concomitant]
     Active Substance: MIDAZOLAM
     Indication: Product used for unknown indication
     Dosage: UNK
     Route: 065
  8. LEVETIRACETAM [Concomitant]
     Active Substance: LEVETIRACETAM
     Indication: Infantile spasms
     Dosage: 3.7 ML, Q12H
     Route: 065
  9. LEVETIRACETAM [Concomitant]
     Active Substance: LEVETIRACETAM
     Indication: Infantile spasms
     Dosage: 2.5 ML, BID
     Route: 065
  10. LEVETIRACETAM [Concomitant]
     Active Substance: LEVETIRACETAM
     Dosage: 2.5 ML, Q12H (DILUTE 1CP IN 5ML OF WATER AND GIVE 2.5ML EVERY 12 HOURS)
     Route: 065
  11. LEVETIRACETAM [Concomitant]
     Active Substance: LEVETIRACETAM
     Dosage: 3 ML, Q12H (DILUTE 1CP IN 5ML OF WATER AND GIVE 3.0ML EVERY 12 /12 HOURS)
     Route: 065
  12. NITRAZEPAM [Concomitant]
     Active Substance: NITRAZEPAM
     Indication: Product used for unknown indication
     Dosage: UNK
     Route: 065
  13. VALPROIC ACID [Concomitant]
     Active Substance: VALPROIC ACID
     Indication: Infantile spasms
     Dosage: 3.5 ML, BID
     Route: 065

REACTIONS (4)
  - Seizure [Unknown]
  - Drug dependence [Unknown]
  - Poor quality product administered [Unknown]
  - Wrong technique in product usage process [Unknown]
